FAERS Safety Report 7108324-4 (Version None)
Quarter: 2010Q4

REPORT INFORMATION
  Report Type: 
  Country: None (occurrence: None)
  Receive Date: 20101117
  Receipt Date: 20101104
  Transmission Date: 20110411
  Serious: Yes (Other)
  Sender: FDA-Public Use
  Company Number: US-ROCHE-739732

PATIENT
  Age: 74 Year
  Sex: Male

DRUGS (8)
  1. AVASTIN [Suspect]
     Indication: COLON CANCER
     Route: 041
  2. OXALIPLATIN [Suspect]
     Indication: COLON CANCER
     Route: 041
  3. FLUOROURACIL [Suspect]
     Indication: COLON CANCER
     Route: 041
  4. FOLINIC ACID [Suspect]
     Indication: COLON CANCER
     Route: 041
  5. OMEPRAZOLE [Concomitant]
  6. NIFEDIPINE [Concomitant]
  7. PRAVASTATIN [Concomitant]
  8. MAGNESIUM SULFATE [Concomitant]

REACTIONS (1)
  - PULMONARY EOSINOPHILIA [None]
